FAERS Safety Report 4282066-5 (Version None)
Quarter: 2004Q1

REPORT INFORMATION
  Report Type: 
  Country: None (occurrence: None)
  Receive Date: 20040130
  Receipt Date: 20021213
  Transmission Date: 20041129
  Serious: No
  Sender: FDA-Public Use
  Company Number: US-BRISTOL-MYERS SQUIBB COMPANY-12136271

PATIENT
  Age: 75 Year
  Sex: Female
  Weight: 41 kg

DRUGS (7)
  1. TRAZODONE HCL [Suspect]
     Indication: INSOMNIA
     Dosage: STARTED ON 100MG, 1 TAB QD AT NIGHT; 8/02 REDUCED TO 75MG; FURTHER REDUCED TO 50MG + THEN STOPPED.
     Route: 048
     Dates: start: 20020701, end: 20020901
  2. ESTRACE [Concomitant]
  3. AMBIEN [Concomitant]
  4. VITAMIN B [Concomitant]
  5. VITAMIN C [Concomitant]
  6. MYLANTA [Concomitant]
  7. VITAMIN B-12 [Concomitant]
     Dosage: ABOUT 4 OUT OF 7 DAYS
     Route: 060

REACTIONS (2)
  - ANOREXIA [None]
  - WEIGHT DECREASED [None]
